FAERS Safety Report 12067619 (Version 1)
Quarter: 2016Q1

REPORT INFORMATION
  Report Type: Spontaneous
  Country: US (occurrence: US)
  Receive Date: 20160210
  Receipt Date: 20160210
  Transmission Date: 20160526
  Serious: No
  Sender: FDA-Public Use
  Company Number: US-ALLERGAN-1522922US

PATIENT
  Sex: Male
  Weight: 104.31 kg

DRUGS (2)
  1. BOTOX [Suspect]
     Active Substance: ONABOTULINUMTOXINA
     Indication: MUSCLE SPASTICITY
     Dosage: 600 UNITS, SINGLE
     Route: 030
     Dates: start: 20150706, end: 20150706
  2. BOTOX [Suspect]
     Active Substance: ONABOTULINUMTOXINA
     Indication: MUSCLE SPASTICITY
     Dosage: 500 UNITS, SINGLE
     Route: 030

REACTIONS (3)
  - Tongue movement disturbance [Recovered/Resolved]
  - Off label use [Unknown]
  - Dysarthria [Recovered/Resolved]

NARRATIVE: CASE EVENT DATE: 2015
